FAERS Safety Report 25776233 (Version 3)
Quarter: 2025Q4

REPORT INFORMATION
  Report Type: Report from Study
  Country: US (occurrence: US)
  Receive Date: 20250909
  Receipt Date: 20251006
  Transmission Date: 20260117
  Serious: Yes (Other)
  Sender: SUNOVION
  Company Number: US-SMPA-2025SPA011361

PATIENT
  Age: 66 Year
  Sex: Male
  Weight: 106.58 kg

DRUGS (2)
  1. ORGOVYX [Suspect]
     Active Substance: RELUGOLIX
     Indication: Prostate cancer
     Dosage: 360 MG
     Route: 048
  2. ORGOVYX [Suspect]
     Active Substance: RELUGOLIX
     Dosage: 120 MG
     Route: 048

REACTIONS (5)
  - Urinary retention [Unknown]
  - Mental impairment [Unknown]
  - Urinary tract infection [Unknown]
  - Hot flush [Not Recovered/Not Resolved]
  - Product dose omission issue [Recovered/Resolved]
